FAERS Safety Report 19987837 (Version 1)
Quarter: 2021Q4

REPORT INFORMATION
  Report Type: Report from Study
  Country: US (occurrence: US)
  Receive Date: 20211023
  Receipt Date: 20211023
  Transmission Date: 20220303
  Serious: Yes (Other)
  Sender: FDA-Public Use
  Company Number: US-UNITED THERAPEUTICS-UNT-2021-020792

PATIENT
  Sex: Female
  Weight: 63.49 kg

DRUGS (3)
  1. TREPROSTINIL SODIUM [Suspect]
     Active Substance: TREPROSTINIL SODIUM
     Indication: Pulmonary arterial hypertension
     Dosage: UNK, CONTINUING
     Route: 041
  2. TREPROSTINIL SODIUM [Suspect]
     Active Substance: TREPROSTINIL SODIUM
     Dosage: 0.100 ?G/KG, CONTINUING
     Route: 041
  3. TADALAFIL [Concomitant]
     Active Substance: TADALAFIL
     Indication: Product used for unknown indication
     Route: 065

REACTIONS (4)
  - Syncope [Unknown]
  - Unresponsive to stimuli [Recovered/Resolved]
  - Hypoaesthesia [Unknown]
  - Device infusion issue [Unknown]
